FAERS Safety Report 22879483 (Version 3)
Quarter: 2023Q4

REPORT INFORMATION
  Report Type: Spontaneous
  Country: US (occurrence: US)
  Receive Date: 20230829
  Receipt Date: 20231207
  Transmission Date: 20240109
  Serious: Yes (Other)
  Sender: FDA-Public Use
  Company Number: US-MYLANLABS-2023M1076010

PATIENT
  Sex: Female
  Weight: 62.4 kg

DRUGS (26)
  1. DEMADEX [Suspect]
     Active Substance: TORSEMIDE
     Indication: Oedema
     Dosage: 10 MILLIGRAM, QD
     Route: 048
     Dates: start: 20230123
  2. DEMADEX [Suspect]
     Active Substance: TORSEMIDE
     Dosage: 20 MG ALTERNATING 40 MG EVERY OTHER DAY FOR MONTH
     Route: 048
     Dates: start: 20230612
  3. TYVASO [Suspect]
     Active Substance: TREPROSTINIL
     Indication: Pulmonary arterial hypertension
     Dosage: 64 MICROGRAM, BID
     Route: 055
  4. TYVASO [Suspect]
     Active Substance: TREPROSTINIL
     Dosage: UNK
     Route: 055
  5. TYVASO [Suspect]
     Active Substance: TREPROSTINIL
     Dosage: UNK
     Route: 055
     Dates: start: 20220922
  6. DELTASONE [Suspect]
     Active Substance: PREDNISONE
     Indication: Sarcoidosis
     Dosage: 40 MILLIGRAM, QD
     Route: 065
     Dates: start: 20230312, end: 20230610
  7. DELTASONE [Suspect]
     Active Substance: PREDNISONE
     Dosage: 20 MILLIGRAM, QD
     Route: 048
     Dates: start: 20230508
  8. DELTASONE [Suspect]
     Active Substance: PREDNISONE
     Dosage: 20 MILLIGRAM, QD
     Route: 048
     Dates: start: 20230519
  9. DELTASONE [Suspect]
     Active Substance: PREDNISONE
     Dosage: 5 MILLIGRAM, QD
     Route: 048
     Dates: start: 20230529
  10. DELTASONE [Suspect]
     Active Substance: PREDNISONE
     Dosage: 5 MILLIGRAM, QOD
     Route: 048
     Dates: start: 20230605
  11. DELTASONE [Suspect]
     Active Substance: PREDNISONE
     Dosage: 2.5 MILLIGRAM, QOD
     Route: 048
     Dates: start: 20230612, end: 20230622
  12. OPSUMIT [Suspect]
     Active Substance: MACITENTAN
     Indication: Pulmonary arterial hypertension
     Dosage: 10 MILLIGRAM, QD
     Route: 048
  13. OPSUMIT [Suspect]
     Active Substance: MACITENTAN
     Dosage: 10 MILLIGRAM, QD
     Route: 048
     Dates: start: 20230312
  14. TADALAFIL [Suspect]
     Active Substance: TADALAFIL
     Indication: Pulmonary arterial hypertension
     Dosage: 20 MILLIGRAM, QD
     Route: 048
     Dates: start: 20221122
  15. PROVENTIL [Concomitant]
     Active Substance: ALBUTEROL
     Dosage: UNK
     Route: 065
     Dates: start: 20230227
  16. CALCIUM\VITAMIN D [Concomitant]
     Active Substance: CALCIUM\VITAMIN D
     Dosage: UNK
     Route: 065
  17. CHOLECALCIFEROL [Concomitant]
     Active Substance: CHOLECALCIFEROL
     Dosage: UNK
     Route: 065
     Dates: start: 20200623
  18. SODIUM CHLORATE [Concomitant]
     Active Substance: SODIUM CHLORATE
     Dosage: UNK
     Route: 065
     Dates: start: 20230309
  19. GLUCOPHAGE XR [Concomitant]
     Active Substance: METFORMIN HYDROCHLORIDE
     Dosage: UNK
     Route: 065
     Dates: start: 20230525
  20. GLUCOTROL XL [Concomitant]
     Active Substance: GLIPIZIDE
     Dosage: UNK
     Route: 065
     Dates: start: 20230525
  21. COMBIGAN [Concomitant]
     Active Substance: BRIMONIDINE TARTRATE\TIMOLOL MALEATE
     Dosage: UNK
     Route: 065
  22. SILDENAFIL CITRATE [Concomitant]
     Active Substance: SILDENAFIL CITRATE
     Dosage: UNK
     Route: 065
  23. PFIZER-BIONTECH COVID-19 VACCINE [Concomitant]
     Active Substance: TOZINAMERAN
     Dosage: UNK
     Route: 065
  24. TYLENOL [Concomitant]
     Active Substance: ACETAMINOPHEN
     Dosage: UNK
     Route: 065
  25. VITAMIN B1 [Concomitant]
     Active Substance: THIAMINE HYDROCHLORIDE
     Dosage: UNK
     Route: 065
  26. OXYGEN [Concomitant]
     Active Substance: OXYGEN
     Dosage: UNK
     Route: 065

REACTIONS (28)
  - Right ventricular failure [Unknown]
  - Therapy interrupted [Unknown]
  - Swelling [Unknown]
  - Sputum discoloured [Unknown]
  - Oedema peripheral [Unknown]
  - Oedema [Unknown]
  - Left ventricular end-diastolic pressure [Unknown]
  - Pulmonary arterial wedge pressure [Unknown]
  - Peripheral swelling [Unknown]
  - Fatigue [Unknown]
  - Dyspnoea [Not Recovered/Not Resolved]
  - Angiotensin converting enzyme increased [Unknown]
  - Red blood cell sedimentation rate increased [Unknown]
  - Weight increased [Unknown]
  - Hyperglycaemia [Unknown]
  - Ocular icterus [Unknown]
  - Skin hypopigmentation [Unknown]
  - Myalgia [Unknown]
  - Wheezing [Unknown]
  - Walking distance test abnormal [Unknown]
  - Rales [Unknown]
  - Pulmonary function test abnormal [Unknown]
  - Pain in extremity [Unknown]
  - Diastolic dysfunction [Unknown]
  - Left atrial dilatation [Unknown]
  - Right atrial dilatation [Unknown]
  - Sputum increased [Unknown]
  - Therapy non-responder [Unknown]
